FAERS Safety Report 7820576 (Version 4)
Quarter: 2017Q2

REPORT INFORMATION
  Report Type: Spontaneous
  Country: US (occurrence: US)
  Receive Date: 20110221
  Receipt Date: 20170413
  Transmission Date: 20170830
  Serious: Yes (Other)
  Sender: FDA-Public Use
  Company Number: US-ASTRAZENECA-2010SE20728

PATIENT
  Age: 70 Year
  Sex: Female
  Weight: 65.8 kg

DRUGS (8)
  1. SEROQUEL [Suspect]
     Active Substance: QUETIAPINE FUMARATE
     Indication: BIPOLAR DISORDER
     Route: 048
     Dates: start: 2005
  2. CRESTOR [Suspect]
     Active Substance: ROSUVASTATIN CALCIUM
     Route: 048
  3. LOSARTAN. [Concomitant]
     Active Substance: LOSARTAN
  4. SEROQUEL [Suspect]
     Active Substance: QUETIAPINE FUMARATE
     Indication: BIPOLAR DISORDER
     Dosage: EXTRA HALF OF A TABLET (150MG) IN THE MORNING
     Route: 048
  5. ATENOLOL. [Suspect]
     Active Substance: ATENOLOL
     Indication: BLOOD PRESSURE ABNORMAL
     Route: 048
     Dates: start: 2000
  6. SEROQUEL [Suspect]
     Active Substance: QUETIAPINE FUMARATE
     Indication: BIPOLAR DISORDER
     Route: 048
     Dates: start: 201508
  7. SEROQUEL [Suspect]
     Active Substance: QUETIAPINE FUMARATE
     Indication: BIPOLAR DISORDER
     Route: 048
  8. ATENOLOL. [Suspect]
     Active Substance: ATENOLOL
     Indication: BLOOD PRESSURE ABNORMAL
     Route: 048
     Dates: start: 2000

REACTIONS (16)
  - Malaise [Unknown]
  - Intentional product use issue [Unknown]
  - Drug intolerance [Unknown]
  - Intentional product misuse [Unknown]
  - Off label use [Unknown]
  - Heart rate increased [Unknown]
  - Insomnia [Unknown]
  - Depression [Unknown]
  - Blood pressure increased [Unknown]
  - Weight decreased [Unknown]
  - Drug dose omission [Unknown]
  - Drug ineffective [Unknown]
  - Social fear [Unknown]
  - Blood cholesterol increased [Unknown]
  - Suicidal ideation [Unknown]
  - Bipolar disorder [Unknown]

NARRATIVE: CASE EVENT DATE: 2015
